FAERS Safety Report 7302401-0 (Version None)
Quarter: 2011Q1

REPORT INFORMATION
  Report Type: 
  Country: None (occurrence: None)
  Receive Date: 20110218
  Receipt Date: 20100217
  Transmission Date: 20110831
  Serious: No
  Sender: FDA-Public Use
  Company Number: US-ASTRAZENECA-2010SE07070

PATIENT
  Age: 82 Year
  Sex: Female
  Weight: 64.9 kg

DRUGS (2)
  1. QVAR 40 [Concomitant]
  2. ACCOLATE [Suspect]
     Indication: ASTHMA
     Route: 048
     Dates: start: 20000101

REACTIONS (1)
  - MUSCULAR WEAKNESS [None]
